FAERS Safety Report 10109175 (Version 1)
Quarter: 2014Q2

REPORT INFORMATION
  Report Type: Spontaneous
  Country: US (occurrence: None)
  Receive Date: 20140423
  Receipt Date: 20140423
  Transmission Date: 20141212
  Serious: Yes (Hospitalization, Other)
  Sender: FDA-Public Use
  Company Number: AXC-2014-000278

PATIENT
  Age: 32 Year
  Sex: Female

DRUGS (12)
  1. PYLERA [Suspect]
     Indication: HELICOBACTER GASTRITIS
     Route: 048
     Dates: start: 20140207, end: 20140217
  2. HUMIRA [Suspect]
     Indication: PSORIASIS
     Dosage: 1 CYCLE, SUBCUTANEOUS
     Route: 058
     Dates: start: 201311, end: 201403
  3. TOLEXINE [Suspect]
     Indication: ACNE
     Dosage: 50 UG, BID, ORAL
     Route: 048
     Dates: start: 20131118
  4. ENTOCORT [Suspect]
     Indication: COLITIS
     Route: 048
  5. ZELITREX [Suspect]
     Indication: ORAL HERPES
     Route: 048
     Dates: start: 20140220
  6. COLCHICINE [Suspect]
     Indication: APHTHOUS STOMATITIS
     Route: 048
     Dates: start: 20140220, end: 20140224
  7. PLAQUENIL [Concomitant]
  8. INEXIUM [Concomitant]
  9. LYRICA [Concomitant]
  10. SULFARLEM [Concomitant]
  11. NOCTAMIDE [Concomitant]
  12. PILOCARPINE [Concomitant]

REACTIONS (7)
  - Aphthous stomatitis [None]
  - Clostridium difficile colitis [None]
  - Diarrhoea [None]
  - Pyrexia [None]
  - Nausea [None]
  - Abdominal pain [None]
  - Oral herpes [None]
